FAERS Safety Report 5106686-0 (Version None)
Quarter: 2006Q3

REPORT INFORMATION
  Report Type: 
  Country: None (occurrence: None)
  Receive Date: 20060918
  Receipt Date: 20060913
  Transmission Date: 20061208
  Serious: Yes (Death, Hospitalization)
  Sender: FDA-Public Use
  Company Number: PHBS2006TW14009

PATIENT
  Age: 50 Year
  Sex: Female

DRUGS (2)
  1. GLEEVEC [Suspect]
     Indication: CHRONIC MYELOID LEUKAEMIA
     Dosage: 400 MG, QD
     Dates: start: 20030622
  2. GLEEVEC [Suspect]
     Dosage: 600 MG, QD

REACTIONS (18)
  - ANAEMIA [None]
  - BLAST CELLS PRESENT [None]
  - BLAST CRISIS IN MYELOGENOUS LEUKAEMIA [None]
  - BLOOD OSMOLARITY INCREASED [None]
  - BLOOD SODIUM INCREASED [None]
  - DECREASED APPETITE [None]
  - DEPRESSED LEVEL OF CONSCIOUSNESS [None]
  - DEPRESSION [None]
  - DIABETES INSIPIDUS [None]
  - ELECTROLYTE IMBALANCE [None]
  - ESCHERICHIA INFECTION [None]
  - LEUKOCYTOSIS [None]
  - NAUSEA [None]
  - POLYURIA [None]
  - SEPTIC SHOCK [None]
  - SPLENOMEGALY [None]
  - THROMBOCYTHAEMIA [None]
  - VOMITING [None]
